FAERS Safety Report 5625556-2 (Version None)
Quarter: 2008Q1

REPORT INFORMATION
  Report Type: 
  Country: None (occurrence: None)
  Receive Date: 20080211
  Receipt Date: 20080211
  Transmission Date: 20080703
  Serious: Yes (Hospitalization)
  Sender: FDA-Public Use
  Company Number: None

PATIENT
  Sex: Female
  Weight: 72 kg

DRUGS (4)
  1. FLUOROURACIL [Suspect]
     Dosage: 5040 MG
     Dates: end: 20080128
  2. BEVACIZUMAB (RHUMAB VEGF) [Suspect]
     Dosage: 360 MG
     Dates: end: 20080128
  3. CAMPTOSAR [Suspect]
     Dosage: 325 MG
     Dates: end: 20080128
  4. LEUCOVORIN CALCIUM [Suspect]
     Dosage: 720 MG
     Dates: end: 20080128

REACTIONS (4)
  - ANOREXIA [None]
  - CONSTIPATION [None]
  - DEHYDRATION [None]
  - DIARRHOEA [None]
